FAERS Safety Report 22902568 (Version 2)
Quarter: 2023Q4

REPORT INFORMATION
  Report Type: Spontaneous
  Country: GB (occurrence: GB)
  Receive Date: 20230904
  Receipt Date: 20231011
  Transmission Date: 20240110
  Serious: Yes (Other)
  Sender: FDA-Public Use
  Company Number: GB-MHRA-MED-202308240353285230-FSVZK

PATIENT
  Age: 30 Year
  Sex: Female

DRUGS (1)
  1. OFLOXACIN [Suspect]
     Active Substance: OFLOXACIN
     Indication: Uterine pain
     Dosage: 800 MILLIGRAM DAILY; 400MG TWICE DAILY
     Route: 065
     Dates: start: 20230819

REACTIONS (10)
  - Anxiety [Not Recovered/Not Resolved]
  - Insomnia [Not Recovered/Not Resolved]
  - Medication error [Unknown]
  - Haematochezia [Recovering/Resolving]
  - Abdominal pain [Unknown]
  - Diarrhoea [Unknown]
  - Faeces discoloured [Unknown]
  - Nausea [Unknown]
  - Tinnitus [Unknown]
  - Suicidal ideation [Unknown]

NARRATIVE: CASE EVENT DATE: 20230821
